FAERS Safety Report 25815588 (Version 1)
Quarter: 2025Q3

REPORT INFORMATION
  Report Type: Spontaneous
  Country: EU (occurrence: EU)
  Receive Date: 20250918
  Receipt Date: 20250918
  Transmission Date: 20251020
  Serious: Yes (Hospitalization)
  Sender: ACCORD
  Company Number: None

PATIENT
  Age: 41 Year
  Sex: Female
  Weight: 78 kg

DRUGS (1)
  1. PACLITAXEL [Suspect]
     Active Substance: PACLITAXEL
     Indication: Breast cancer
     Dates: start: 202505

REACTIONS (2)
  - Eczema [Not Recovered/Not Resolved]
  - Superficial inflammatory dermatosis [Not Recovered/Not Resolved]

NARRATIVE: CASE EVENT DATE: 20250501
